FAERS Safety Report 10377693 (Version 3)
Quarter: 2014Q4

REPORT INFORMATION
  Report Type: Report from Study
  Country: MX (occurrence: MX)
  Receive Date: 20140812
  Receipt Date: 20141215
  Transmission Date: 20150528
  Serious: Yes (Hospitalization)
  Sender: FDA-Public Use
  Company Number: PHHY2014MX099018

PATIENT
  Age: 72 Year
  Sex: Male

DRUGS (4)
  1. VYTORIN [Concomitant]
     Active Substance: EZETIMIBE\SIMVASTATIN
     Indication: DIABETES MELLITUS
     Dosage: 3 DF, QD
     Route: 065
  2. CO-DIOVAN [Suspect]
     Active Substance: HYDROCHLOROTHIAZIDE\VALSARTAN
     Indication: HYPERTENSION
     Dosage: 1 DF, Q12H
     Route: 048
  3. GLUCOFAGE [Concomitant]
     Indication: DIABETES MELLITUS
     Dosage: 2 DF, QD
     Route: 065
  4. EUGLUCON [Concomitant]
     Active Substance: GLYBURIDE
     Indication: PRODUCT USED FOR UNKNOWN INDICATION
     Dosage: UNK DF, UNK
     Route: 065

REACTIONS (3)
  - Fall [Recovered/Resolved]
  - Pain [Recovered/Resolved]
  - Bone fissure [Recovered/Resolved]
